FAERS Safety Report 12540456 (Version 2)
Quarter: 2016Q3

REPORT INFORMATION
  Report Type: Spontaneous
  Country: US (occurrence: US)
  Receive Date: 20160708
  Receipt Date: 20160729
  Transmission Date: 20161109
  Serious: No
  Sender: FDA-Public Use
  Company Number: US-PFIZER INC-2016334200

PATIENT
  Age: 61 Year
  Sex: Male
  Weight: 142.4 kg

DRUGS (9)
  1. PRAZOSIN [Concomitant]
     Active Substance: PRAZOSIN
     Indication: HYPERTENSION
     Dosage: 1 DF, 1X/DAY (EACH MORNING)
     Route: 048
     Dates: start: 1995
  2. LISINOPRIL. [Concomitant]
     Active Substance: LISINOPRIL
     Indication: BLOOD PRESSURE MANAGEMENT
     Dosage: 1 DF, 1X/DAY (EACH MORNING)
     Route: 048
     Dates: start: 1995
  3. METFORMIN [Concomitant]
     Active Substance: METFORMIN HYDROCHLORIDE
     Indication: DIABETES MELLITUS
     Dosage: 1 DF, 2X/DAY
     Route: 048
     Dates: start: 2001
  4. FLONASE [Concomitant]
     Active Substance: FLUTICASONE PROPIONATE
     Indication: HYPERSENSITIVITY
     Dosage: UNK, AS NEEDED (TWO SPRAYS EACH NOSTRIL ONCE A DAY OR WHEN NEEDED)
     Route: 045
     Dates: start: 1992
  5. ATORVASTATIN CALCIUM. [Suspect]
     Active Substance: ATORVASTATIN CALCIUM
     Indication: BLOOD CHOLESTEROL INCREASED
     Dosage: 80 MG, 1X/DAY
     Route: 048
  6. INSULIN N [Concomitant]
     Active Substance: INSULIN HUMAN
     Indication: DIABETES MELLITUS
     Dosage: 60 IU (44UNITS SUBCUTANEOUS INJ EACH MORNING, AND 16UNITS SUBCUTANEOUS INJ EACH BEDTIME)
     Route: 058
     Dates: start: 2001
  7. ATENOLOL. [Concomitant]
     Active Substance: ATENOLOL
     Indication: HYPERTENSION
     Dosage: 10 MG, DAILY
     Route: 048
     Dates: start: 1992
  8. INSULIN RAPID [Concomitant]
     Active Substance: INSULIN NOS
     Indication: DIABETES MELLITUS
     Dosage: 38 IU (22UNITS SUBCUTANEOUS INJ EACH MORNING, 16UNITS SUBCUTANEOUS INJ EACH BEDTIME)
     Route: 058
     Dates: start: 2001
  9. GLYBURIDE. [Concomitant]
     Active Substance: GLYBURIDE
     Indication: DIABETES MELLITUS
     Dosage: 1 DF, 2X/DAY
     Route: 048
     Dates: start: 2001

REACTIONS (12)
  - Malaise [Recovered/Resolved]
  - Feeling abnormal [Unknown]
  - Fatigue [Not Recovered/Not Resolved]
  - Affective disorder [Unknown]
  - Drug dose omission [Not Recovered/Not Resolved]
  - Thinking abnormal [Unknown]
  - Depression [Unknown]
  - Emotional distress [Recovered/Resolved]
  - Depressed mood [Not Recovered/Not Resolved]
  - Mood swings [Not Recovered/Not Resolved]
  - Muscle spasms [Not Recovered/Not Resolved]
  - Myalgia [Not Recovered/Not Resolved]
